FAERS Safety Report 4673249-0 (Version None)
Quarter: 2005Q2

REPORT INFORMATION
  Report Type: 
  Country: None (occurrence: None)
  Receive Date: 20050525
  Receipt Date: 20050518
  Transmission Date: 20051028
  Serious: Yes (Other)
  Sender: FDA-Public Use
  Company Number: 200514453GDDC

PATIENT
  Age: 69 Year
  Sex: Male

DRUGS (8)
  1. RAMIPRIL [Suspect]
     Indication: ACUTE MYOCARDIAL INFARCTION
     Route: 048
  2. FRUSEMIDE [Suspect]
     Route: 042
     Dates: start: 20040117
  3. ALDACTONE [Concomitant]
     Indication: ACUTE MYOCARDIAL INFARCTION
     Route: 048
  4. ESOMEPRAZOLE MAGNESIUM TRIHYDRATE [Concomitant]
     Route: 048
  5. ANGININE [Concomitant]
     Indication: MYOCARDIAL ISCHAEMIA
     Route: 048
  6. SLOW-K [Concomitant]
     Route: 048
     Dates: start: 20040114, end: 20040117
  7. MORPHINE SULFATE [Concomitant]
     Route: 058
     Dates: start: 20040114
  8. MYLANTA [Concomitant]
     Route: 048
     Dates: start: 20040114

REACTIONS (1)
  - RENAL FAILURE ACUTE [None]
